FAERS Safety Report 21368874 (Version 1)
Quarter: 2022Q3

REPORT INFORMATION
  Report Type: Spontaneous
  Country: US (occurrence: US)
  Receive Date: 20220923
  Receipt Date: 20220923
  Transmission Date: 20221027
  Serious: No
  Sender: FDA-Public Use
  Company Number: US-APOTEX-2022AP010799

PATIENT
  Age: 31 Year
  Sex: Male

DRUGS (12)
  1. FAMOTIDINE [Suspect]
     Active Substance: FAMOTIDINE
     Indication: Antiallergic therapy
     Dosage: 20 MILLIGRAM, QD
     Route: 065
  2. FAMOTIDINE [Suspect]
     Active Substance: FAMOTIDINE
     Indication: Pruritus
  3. FAMOTIDINE [Suspect]
     Active Substance: FAMOTIDINE
     Indication: Papule
  4. FAMOTIDINE [Suspect]
     Active Substance: FAMOTIDINE
     Indication: Urticaria
  5. CETIRIZINE [Suspect]
     Active Substance: CETIRIZINE HYDROCHLORIDE
     Indication: Antiallergic therapy
     Dosage: UNK
     Route: 065
  6. CETIRIZINE [Suspect]
     Active Substance: CETIRIZINE HYDROCHLORIDE
     Indication: Pruritus
     Dosage: 10 MILLIGRAM  (IN THE EVENING)
     Route: 065
  7. CETIRIZINE [Suspect]
     Active Substance: CETIRIZINE HYDROCHLORIDE
     Indication: Papule
  8. CETIRIZINE [Suspect]
     Active Substance: CETIRIZINE HYDROCHLORIDE
     Indication: Urticaria
  9. FEXOFENADINE [Suspect]
     Active Substance: FEXOFENADINE HYDROCHLORIDE
     Indication: Antiallergic therapy
     Dosage: 180 MILLIGRAM
     Route: 065
  10. FEXOFENADINE [Suspect]
     Active Substance: FEXOFENADINE HYDROCHLORIDE
     Indication: Pruritus
  11. FEXOFENADINE [Suspect]
     Active Substance: FEXOFENADINE HYDROCHLORIDE
     Indication: Papule
  12. FEXOFENADINE [Suspect]
     Active Substance: FEXOFENADINE HYDROCHLORIDE
     Indication: Urticaria

REACTIONS (1)
  - Adverse drug reaction [Unknown]
